FAERS Safety Report 11496429 (Version 3)
Quarter: 2015Q4

REPORT INFORMATION
  Report Type: Report from Study
  Country: US (occurrence: US)
  Receive Date: 20150911
  Receipt Date: 20151027
  Transmission Date: 20160304
  Serious: Yes (Hospitalization)
  Sender: FDA-Public Use
  Company Number: US-SA-2015SA091366

PATIENT
  Age: 67 Year
  Sex: Female

DRUGS (2)
  1. TOUJEO [Suspect]
     Active Substance: INSULIN GLARGINE
     Indication: DIABETES MELLITUS
     Dosage: DOSE:50 U IN MORNING AND 60 U IN EVENING
     Route: 065
     Dates: start: 20150612
  2. SOLOSTAR [Concomitant]
     Active Substance: DEVICE
     Indication: DIABETES MELLITUS
     Dates: start: 20150612, end: 20150617

REACTIONS (8)
  - Anaemia [Unknown]
  - Off label use [Unknown]
  - Mobility decreased [Unknown]
  - Gait disturbance [Unknown]
  - Intracardiac thrombus [Unknown]
  - Chest discomfort [Unknown]
  - Malaise [Unknown]
  - Pain [Unknown]

NARRATIVE: CASE EVENT DATE: 20150612
